FAERS Safety Report 6116976-0 (Version None)
Quarter: 2009Q1

REPORT INFORMATION
  Report Type: 
  Country: None (occurrence: None)
  Receive Date: 20090314
  Receipt Date: 20090105
  Transmission Date: 20090719
  Serious: No
  Sender: FDA-Public Use
  Company Number: US-ABBOTT-09P-163-0495878-00

PATIENT
  Sex: Male
  Weight: 65.83 kg

DRUGS (2)
  1. HUMIRA [Suspect]
     Indication: ANKYLOSING SPONDYLITIS
     Dates: start: 20070101
  2. ASACOL [Concomitant]
     Indication: DRUG USE FOR UNKNOWN INDICATION
     Dosage: 1600 BID
     Dates: start: 19990101

REACTIONS (1)
  - PAIN [None]
